FAERS Safety Report 5251801-1 (Version None)
Quarter: 2007Q1

REPORT INFORMATION
  Report Type: 
  Country: None (occurrence: None)
  Receive Date: 20070228
  Receipt Date: 20070216
  Transmission Date: 20070707
  Serious: Yes (Hospitalization)
  Sender: FDA-Public Use
  Company Number: FR-PFIZER INC-2007013596

PATIENT
  Age: 40 Year
  Sex: Female

DRUGS (11)
  1. METHYLPREDNISOLONE SODIUM SUCCINATE [Suspect]
     Indication: LYMPHOMA
     Route: 042
     Dates: start: 20061205
  2. CYTARABINE [Suspect]
     Indication: LYMPHOMA
     Route: 042
     Dates: start: 20061204, end: 20061204
  3. ETOPOSIDE [Suspect]
     Indication: LYMPHOMA
     Route: 042
     Dates: start: 20061130, end: 20061203
  4. CISPLATIN [Suspect]
     Indication: LYMPHOMA
     Route: 042
     Dates: start: 20061130, end: 20061203
  5. RITUXIMAB [Suspect]
     Indication: LYMPHOMA
     Route: 042
     Dates: start: 20061205, end: 20061206
  6. FLUDARABINE [Suspect]
     Indication: LYMPHOMA
     Route: 042
  7. VALACYCLOVIR HCL [Concomitant]
  8. SULFAMETHOXAZOLE [Concomitant]
  9. FOLIC ACID [Concomitant]
  10. ESOMEPRAZOLE MAGNESIUM [Concomitant]
  11. CHLORMADINONE ACETATE TAB [Concomitant]

REACTIONS (4)
  - CONFUSIONAL STATE [None]
  - GRAND MAL CONVULSION [None]
  - HEADACHE [None]
  - PYREXIA [None]
